FAERS Safety Report 16970346 (Version 2)
Quarter: 2020Q2

REPORT INFORMATION
  Report Type: Spontaneous
  Country: US (occurrence: US)
  Receive Date: 20191029
  Receipt Date: 20200519
  Transmission Date: 20200713
  Serious: Yes (Other)
  Sender: FDA-Public Use
  Company Number: US-GILEAD-2019-0434731

PATIENT
  Sex: Female

DRUGS (1)
  1. VIREAD [Suspect]
     Active Substance: TENOFOVIR DISOPROXIL FUMARATE
     Indication: HIV INFECTION
     Dosage: UNK
     Route: 048
     Dates: start: 2001, end: 2010

REACTIONS (16)
  - Osteopenia [Unknown]
  - Vitamin D decreased [Unknown]
  - Pathological fracture [Unknown]
  - Back pain [Unknown]
  - Bone density decreased [Unknown]
  - Glycosuria [Unknown]
  - Emotional distress [Not Recovered/Not Resolved]
  - Osteoporosis [Unknown]
  - Fanconi syndrome acquired [Unknown]
  - Blood phosphorus decreased [Unknown]
  - Pain [Not Recovered/Not Resolved]
  - Renal failure [Unknown]
  - Proteinuria [Unknown]
  - Anxiety [Not Recovered/Not Resolved]
  - Anhedonia [Not Recovered/Not Resolved]
  - Economic problem [Not Recovered/Not Resolved]
